FAERS Safety Report 10431291 (Version 1)
Quarter: 2014Q3

REPORT INFORMATION
  Report Type: Spontaneous
  Country: US (occurrence: None)
  Receive Date: 20140903
  Receipt Date: 20140903
  Transmission Date: 20150326
  Serious: Yes (Other)
  Sender: FDA-Public Use
  Company Number: 001792215A

PATIENT
  Age: 82 Year
  Sex: Female

DRUGS (2)
  1. MEANINGFUL BEAUTY CINDY CRAWFORD ANTIOXIDANT SPF 20 UVA/UVB [Suspect]
     Active Substance: AVOBENZONE\OCTINOXATE\OCTISALATE\OXYBENZONE
     Indication: ACNE
     Dosage: DERMAL
     Dates: start: 20140324, end: 20140414
  2. MEANINGFUL BEAUTY CINDY CRAWFORD SKIN BRIGHTENING DECOLLETE AND NECK TREATMENT SPF 15 [Suspect]
     Active Substance: AVOBENZONE\OCTINOXATE\OCTISALATE\OXYBENZONE
     Indication: ACNE
     Dosage: DERMAL
     Dates: start: 20140324, end: 20140414

REACTIONS (2)
  - Application site acne [None]
  - Skin cancer [None]

NARRATIVE: CASE EVENT DATE: 20140410
